FAERS Safety Report 8101979-7 (Version None)
Quarter: 2012Q1

REPORT INFORMATION
  Report Type: 
  Country: None (occurrence: None)
  Receive Date: 20120131
  Receipt Date: 20120118
  Transmission Date: 20120608
  Serious: Yes (Hospitalization)
  Sender: FDA-Public Use
  Company Number: FR-ELI_LILLY_AND_COMPANY-FR201112005492

PATIENT
  Age: 52 Year
  Sex: Female
  Weight: 64 kg

DRUGS (4)
  1. ESIDRIX [Concomitant]
     Indication: HYPERTENSION
     Dosage: 1 DF, QD
     Route: 048
     Dates: start: 20110501, end: 20111121
  2. PREVISCAN [Concomitant]
     Indication: PROSTHESIS USER
     Dosage: UNK, QD
     Route: 048
     Dates: start: 19990101
  3. RAMIPRIL [Concomitant]
     Indication: HYPERTENSION
     Dosage: 2.5 MG, QD
     Route: 048
     Dates: start: 20110501, end: 20111121
  4. FORTEO [Suspect]
     Indication: OSTEOPOROSIS
     Dosage: 20 UG, QD
     Route: 058
     Dates: start: 20111007, end: 20111107

REACTIONS (1)
  - ATRIAL FIBRILLATION [None]
